FAERS Safety Report 10921482 (Version 1)
Quarter: 2015Q1

REPORT INFORMATION
  Report Type: Report from Study
  Country: DE (occurrence: CO)
  Receive Date: 20150317
  Receipt Date: 20150317
  Transmission Date: 20150721
  Serious: Yes (Other)
  Sender: FDA-Public Use
  Company Number: DE-ACTELION-A-NJ2015-114708

PATIENT
  Age: 60 Year
  Sex: Male

DRUGS (6)
  1. VENTAVIS [Suspect]
     Active Substance: ILOPROST
     Dosage: 4 TIMES A DAY
     Route: 055
     Dates: start: 201501, end: 201502
  2. VENTAVIS [Suspect]
     Active Substance: ILOPROST
     Dosage: 5/D,
     Route: 055
     Dates: start: 20140826, end: 20141001
  3. MONTELUKAST [Concomitant]
     Active Substance: MONTELUKAST SODIUM
     Dosage: UNK
  4. WARFARIN [Concomitant]
     Active Substance: WARFARIN
  5. SALBUTAMOL [Concomitant]
     Active Substance: ALBUTEROL
  6. VENTAVIS [Suspect]
     Active Substance: ILOPROST
     Indication: PULMONARY HYPERTENSION
     Dosage: 6/D
     Route: 055
     Dates: end: 201501

REACTIONS (3)
  - Headache [Recovered/Resolved]
  - Erythema [Recovered/Resolved]
  - Medication error [Unknown]

NARRATIVE: CASE EVENT DATE: 20141001
